FAERS Safety Report 10554030 (Version 1)
Quarter: 2014Q4

REPORT INFORMATION
  Report Type: Spontaneous
  Country: US (occurrence: None)
  Receive Date: 20141028
  Receipt Date: 20141028
  Transmission Date: 20150529
  Serious: Yes (Other)
  Sender: FDA-Public Use
  Company Number: US-017430

PATIENT
  Age: 59 Year
  Sex: Female
  Weight: 58.06 kg

DRUGS (1)
  1. PREPOPIK [Suspect]
     Active Substance: ANHYDROUS CITRIC ACID\MAGNESIUM OXIDE\SODIUM PICOSULFATE
     Indication: BOWEL PREPARATION
     Dosage: 1ST PACKET AT 5:00 PM ON 13 OCT 2014; 2ND PACK AT 4:30 AM ON 14 OCT 2014 ORAL)
     Route: 048
     Dates: start: 20141013, end: 20141014

REACTIONS (3)
  - Vomiting [None]
  - Chills [None]
  - Atrial flutter [None]

NARRATIVE: CASE EVENT DATE: 20141013
